FAERS Safety Report 6180555-X (Version None)
Quarter: 2009Q2

REPORT INFORMATION
  Report Type: 
  Country: None (occurrence: None)
  Receive Date: 20090504
  Receipt Date: 20090428
  Transmission Date: 20091009
  Serious: Yes (Other)
  Sender: FDA-Public Use
  Company Number: 2009SP008062

PATIENT
  Age: 45 Year
  Sex: Male

DRUGS (8)
  1. PEG-INTRON [Suspect]
     Indication: HEPATITIS C
     Dosage: 150 MCG;QW;SC
     Route: 058
     Dates: start: 20090312
  2. RIBAVIRIN [Suspect]
     Indication: HEPATITIS C
     Dosage: 3 DF;BID;PO
     Route: 048
     Dates: start: 20090312
  3. ADVAIR HFA [Concomitant]
  4. PRILOSEC [Concomitant]
  5. CELEBREX [Concomitant]
  6. ALBUTEROL [Concomitant]
  7. ATIVAN [Concomitant]
  8. PAROXETINE HCL [Concomitant]

REACTIONS (22)
  - ABDOMINAL DISTENSION [None]
  - ASTHENIA [None]
  - BALANCE DISORDER [None]
  - CHILLS [None]
  - DIZZINESS [None]
  - EPISTAXIS [None]
  - HAEMATOCHEZIA [None]
  - HAEMATOSPERMIA [None]
  - HAEMOPTYSIS [None]
  - HAEMORRHAGE URINARY TRACT [None]
  - HEADACHE [None]
  - HYPERHIDROSIS [None]
  - INFLUENZA LIKE ILLNESS [None]
  - INJECTION SITE ERYTHEMA [None]
  - INJECTION SITE OEDEMA [None]
  - INJECTION SITE PRURITUS [None]
  - INJECTION SITE STREAKING [None]
  - INJECTION SITE WARMTH [None]
  - INSOMNIA [None]
  - LOSS OF CONSCIOUSNESS [None]
  - MEMORY IMPAIRMENT [None]
  - RECTAL HAEMORRHAGE [None]
